FAERS Safety Report 4512713-1 (Version None)
Quarter: 2004Q4

REPORT INFORMATION
  Report Type: 
  Country: None (occurrence: None)
  Receive Date: 20041012
  Receipt Date: 20040721
  Transmission Date: 20050328
  Serious: No
  Sender: FDA-Public Use
  Company Number: A03200402435

PATIENT
  Age: 62 Year
  Sex: Male

DRUGS (2)
  1. UROXATRAL [Suspect]
     Indication: POLLAKIURIA
     Dosage: 10 MG OD - ORAL
     Route: 048
     Dates: start: 20040401, end: 20040717
  2. ATORVASTATIN [Concomitant]

REACTIONS (1)
  - VISION BLURRED [None]
